FAERS Safety Report 15267971 (Version 1)
Quarter: 2018Q3

REPORT INFORMATION
  Report Type: Spontaneous
  Country: US (occurrence: US)
  Receive Date: 20180725
  Receipt Date: 20180725
  Transmission Date: 20181010
  Serious: Yes (Other)
  Sender: FDA-Public Use
  Company Number: None

PATIENT
  Age: 36 Year
  Sex: Female
  Weight: 88.2 kg

DRUGS (1)
  1. GADAVIST [Suspect]
     Active Substance: GADOBUTROL
     Dosage: ?          OTHER FREQUENCY:ONE TIME DOSE;?
     Route: 042
     Dates: start: 20180724, end: 20180724

REACTIONS (1)
  - Pruritus [None]

NARRATIVE: CASE EVENT DATE: 20180724
